FAERS Safety Report 14387445 (Version 2)
Quarter: 2018Q2

REPORT INFORMATION
  Report Type: Spontaneous
  Country: US (occurrence: US)
  Receive Date: 20180115
  Receipt Date: 20180531
  Transmission Date: 20180711
  Serious: Yes (Other)
  Sender: FDA-Public Use
  Company Number: US-SA-2017SA195536

PATIENT
  Age: 43 Year
  Sex: Female
  Weight: 68.87 kg

DRUGS (9)
  1. TAXOTERE [Suspect]
     Active Substance: DOCETAXEL
     Indication: BREAST CANCER
     Dosage: 185 MG,Q3W
     Route: 051
     Dates: start: 20071213, end: 20071213
  2. DEXAMETHASONE. [Concomitant]
     Active Substance: DEXAMETHASONE
  3. ARANESP [Concomitant]
     Active Substance: DARBEPOETIN ALFA
  4. TAXOTERE [Suspect]
     Active Substance: DOCETAXEL
     Dosage: 185 MG,Q3W
     Route: 051
     Dates: start: 20080204, end: 20080204
  5. ALOXI [Concomitant]
     Active Substance: PALONOSETRON HYDROCHLORIDE
  6. NEOSAR [Concomitant]
     Active Substance: CYCLOPHOSPHAMIDE
  7. CYTOXAN [Concomitant]
     Active Substance: CYCLOPHOSPHAMIDE
  8. NEULASTA [Concomitant]
     Active Substance: PEGFILGRASTIM
  9. ADRIAMYCIN [DOXORUBICIN] [Concomitant]

REACTIONS (2)
  - Alopecia [Not Recovered/Not Resolved]
  - Psychological trauma [Unknown]

NARRATIVE: CASE EVENT DATE: 200710
